FAERS Safety Report 6342741-5 (Version None)
Quarter: 2009Q3

REPORT INFORMATION
  Report Type: 
  Country: None (occurrence: None)
  Receive Date: 20090903
  Receipt Date: 20090828
  Transmission Date: 20100115
  Serious: Yes (Disabling)
  Sender: FDA-Public Use
  Company Number: 360116

PATIENT
  Sex: Male

DRUGS (2)
  1. PHENYTOIN [Suspect]
     Dosage: DOSE REDUCED
  2. LACOSAMIDE [Concomitant]

REACTIONS (2)
  - DRUG INTERACTION [None]
  - DRUG TOXICITY [None]
